FAERS Safety Report 8935156 (Version 1)
Quarter: 2012Q4

REPORT INFORMATION
  Report Type: 
  Country: IE (occurrence: IE)
  Receive Date: 20121129
  Receipt Date: 20121129
  Transmission Date: 20130627
  Serious: Yes (Hospitalization, Other)
  Sender: FDA-Public Use
  Company Number: PHHO2011IE16908

PATIENT
  Age: 63 Year
  Sex: Female
  Weight: 58.3 kg

DRUGS (14)
  1. AFINITOR [Suspect]
     Indication: BREAST CANCER METASTATIC
     Dosage: UNK
     Route: 048
     Dates: start: 20110930, end: 20111003
  2. AFINITOR [Suspect]
     Dosage: code not broken
     Route: 048
     Dates: start: 20111007
  3. COMPARATOR TRASTUZUMAB [Suspect]
     Indication: BREAST CANCER METASTATIC
     Dosage: UNK
     Route: 048
     Dates: start: 20110930
  4. COMPARATOR PACLITAXEL [Suspect]
     Indication: BREAST CANCER METASTATIC
     Dosage: UNK
     Route: 048
     Dates: start: 20110930, end: 20111007
  5. COMPARATOR PACLITAXEL [Suspect]
     Dosage: UNK
     Dates: start: 20111014
  6. DOCUSATE SODIUM [Concomitant]
     Dosage: 200 mg, BID
     Dates: start: 20110912, end: 20111004
  7. SENNA [Concomitant]
     Dosage: UNK at night
     Dates: start: 20110908, end: 20111004
  8. MST [Concomitant]
     Indication: ANALGESIC THERAPY
     Dosage: 20 mg, BID
     Route: 048
     Dates: start: 201108, end: 20111004
  9. SECONAL [Concomitant]
     Indication: ANALGESIC THERAPY
     Dosage: 5-10 mg
     Route: 048
     Dates: start: 20110804
  10. LYRICA [Concomitant]
     Indication: ANALGESIC THERAPY
     Dosage: 25 mg, BID
     Route: 048
     Dates: start: 201108
  11. VALOID ORAL [Concomitant]
     Dosage: 50 mg, TID
     Route: 048
     Dates: start: 201109
  12. LOSEC [Concomitant]
     Indication: NAUSEA
     Dosage: 30 mg, QD
     Route: 048
     Dates: start: 201109
  13. DEXAMETHASONE [Concomitant]
     Dosage: 4 mg, QD
     Route: 048
     Dates: start: 201109
  14. MORPHINE [Concomitant]
     Dosage: 3 ml, UNK
     Dates: start: 20111216

REACTIONS (6)
  - Colitis [Unknown]
  - Large intestine perforation [Unknown]
  - Dehydration [Recovered/Resolved]
  - Diarrhoea [Recovered/Resolved]
  - Mucosal inflammation [Recovered/Resolved]
  - Nausea [Recovered/Resolved]
